FAERS Safety Report 9140610 (Version 1)
Quarter: 2013Q1

REPORT INFORMATION
  Report Type: Spontaneous
  Country: JP (occurrence: JP)
  Receive Date: 20130305
  Receipt Date: 20130305
  Transmission Date: 20140127
  Serious: Yes (Other)
  Sender: FDA-Public Use
  Company Number: JP-EISAI INC-E2020-12048-SPO-JP

PATIENT
  Age: 67 Year
  Sex: Male

DRUGS (9)
  1. ARICEPT [Suspect]
     Indication: DEMENTIA ALZHEIMER^S TYPE
     Route: 048
     Dates: start: 20130110, end: 20130124
  2. ARICEPT [Suspect]
     Route: 048
     Dates: start: 20130125, end: 20130128
  3. CRESTOR [Suspect]
     Indication: HYPERLIPIDAEMIA
     Dosage: UNKNOWN
     Route: 048
     Dates: end: 20130128
  4. GLIMEPIRIDE [Concomitant]
     Indication: DIABETES MELLITUS
     Route: 048
  5. PIOGLITAZONE [Concomitant]
     Indication: DIABETES MELLITUS
     Route: 048
  6. OLMETEC [Concomitant]
     Indication: HYPERTENSION
     Route: 048
  7. PLAVIX [Concomitant]
     Route: 048
  8. GLACTIV [Concomitant]
     Indication: DIABETES MELLITUS
     Route: 048
  9. BERASTOLIN [Concomitant]
     Indication: PERIPHERAL ARTERIAL OCCLUSIVE DISEASE
     Route: 048

REACTIONS (1)
  - Rhabdomyolysis [Recovered/Resolved]
